FAERS Safety Report 5791475-4 (Version None)
Quarter: 2008Q2

REPORT INFORMATION
  Report Type: 
  Country: None (occurrence: None)
  Receive Date: 20080626
  Receipt Date: 20080305
  Transmission Date: 20081010
  Serious: No
  Sender: FDA-Public Use
  Company Number: A0713393A

PATIENT
  Age: 48 Year
  Sex: Female

DRUGS (4)
  1. ALLI [Suspect]
     Dates: start: 20080207, end: 20080217
  2. LIPITOR [Concomitant]
  3. THYROID TAB [Concomitant]
  4. BLOOD PRESSURE MEDICATION [Concomitant]

REACTIONS (1)
  - ABDOMINAL PAIN [None]
